FAERS Safety Report 18394691 (Version 1)
Quarter: 2020Q4

REPORT INFORMATION
  Report Type: Spontaneous
  Country: US (occurrence: US)
  Receive Date: 20201016
  Receipt Date: 20201016
  Transmission Date: 20210114
  Serious: Yes (Disabling)
  Sender: FDA-Public Use
  Company Number: US-PFIZER INC-2020397301

PATIENT
  Age: 60 Year
  Sex: Female
  Weight: 56.7 kg

DRUGS (7)
  1. RIZATRIPTAN. [Concomitant]
     Active Substance: RIZATRIPTAN
     Indication: MIGRAINE
     Dosage: 10 MG
     Route: 048
     Dates: start: 20200314
  2. TRAMADOL. [Concomitant]
     Active Substance: TRAMADOL
     Indication: BONE DISORDER
     Dosage: 50 MG, AS NEEDED (50MG EVERY 6 HOURS AS NEEDED)
  3. ESCITALOPRAM [Suspect]
     Active Substance: ESCITALOPRAM OXALATE
     Indication: DEPRESSION
     Dosage: UNK, (10 MG OR 20 MG)
     Dates: start: 202005
  4. TOPAMAX [Suspect]
     Active Substance: TOPIRAMATE
     Indication: MIGRAINE
     Dosage: 25 MG, 2X/DAY
     Route: 048
     Dates: start: 20200314
  5. IMITREX [Concomitant]
     Active Substance: SUMATRIPTAN SUCCINATE
     Indication: MIGRAINE
     Dosage: UNK, AS NEEDED
  6. TRAMADOL. [Concomitant]
     Active Substance: TRAMADOL
     Indication: PAIN
  7. PREMARIN [Suspect]
     Active Substance: ESTROGENS, CONJUGATED
     Indication: MENOPAUSE
     Dosage: 0.625 MG, DAILY
     Route: 048
     Dates: start: 2020

REACTIONS (10)
  - Therapeutic response unexpected [Recovering/Resolving]
  - Vomiting [Unknown]
  - Nephropathy [Unknown]
  - Nausea [Unknown]
  - Dehydration [Unknown]
  - Spinal osteoarthritis [Unknown]
  - Calcium deficiency [Unknown]
  - Illness [Unknown]
  - Withdrawal syndrome [Unknown]
  - Back pain [Unknown]

NARRATIVE: CASE EVENT DATE: 2020
